FAERS Safety Report 12253040 (Version 3)
Quarter: 2016Q4

REPORT INFORMATION
  Report Type: Report from Study
  Country: US (occurrence: US)
  Receive Date: 20160411
  Receipt Date: 20161223
  Transmission Date: 20170207
  Serious: Yes (Death, Hospitalization, Other)
  Sender: FDA-Public Use
  Company Number: PHEH2016US008707

PATIENT
  Age: 86 Year
  Sex: Male
  Weight: 58.96 kg

DRUGS (1)
  1. ENTRESTO [Suspect]
     Active Substance: SACUBITRIL\VALSARTAN
     Indication: CARDIAC FAILURE
     Dosage: 50 MG, UNK
     Route: 048

REACTIONS (9)
  - Hypovolaemia [Unknown]
  - Death [Fatal]
  - Cough [Unknown]
  - Fall [Recovered/Resolved]
  - Presyncope [Recovered/Resolved]
  - Oropharyngeal pain [Unknown]
  - Sneezing [Unknown]
  - Hypotension [Recovered/Resolved]
  - Nasopharyngitis [Unknown]

NARRATIVE: CASE EVENT DATE: 201604
